FAERS Safety Report 11468315 (Version 2)
Quarter: 2015Q3

REPORT INFORMATION
  Report Type: Report from Study
  Country: US (occurrence: US)
  Receive Date: 20150908
  Receipt Date: 20150914
  Transmission Date: 20151125
  Serious: Yes (Other)
  Sender: FDA-Public Use
  Company Number: PHEH2015US006178

PATIENT
  Sex: Female
  Weight: 68.27 kg

DRUGS (1)
  1. GILENYA [Suspect]
     Active Substance: FINGOLIMOD HYDROCHLORIDE
     Indication: MULTIPLE SCLEROSIS
     Dosage: 0.5 MG, QD
     Route: 048
     Dates: start: 20150205

REACTIONS (12)
  - Vision blurred [Not Recovered/Not Resolved]
  - Speech disorder [Not Recovered/Not Resolved]
  - Motor dysfunction [Not Recovered/Not Resolved]
  - Lyme disease [Unknown]
  - Feeding disorder [Not Recovered/Not Resolved]
  - Gait disturbance [Not Recovered/Not Resolved]
  - Hearing impaired [Unknown]
  - Fatigue [Unknown]
  - Muscle twitching [Unknown]
  - Balance disorder [Unknown]
  - Dysgraphia [Unknown]
  - Dizziness [Not Recovered/Not Resolved]
